FAERS Safety Report 6453478-6 (Version None)
Quarter: 2009Q4

REPORT INFORMATION
  Report Type: 
  Country: None (occurrence: None)
  Receive Date: 20091124
  Receipt Date: 20091113
  Transmission Date: 20100525
  Serious: Yes (Other)
  Sender: FDA-Public Use
  Company Number: US-PFIZER INC-2007092144

PATIENT
  Sex: Male
  Weight: 113.38 kg

DRUGS (21)
  1. DILANTIN [Suspect]
     Indication: EPILEPSY
     Dosage: 100 MG, 2 PILLS IN THE MORNING, EVENING AND NIGHT
  2. DILANTIN [Suspect]
     Indication: CONVULSION
  3. PHENYTOIN [Suspect]
     Indication: CONVULSION
  4. ATIVAN [Suspect]
     Dosage: UNK
  5. ASCORBIC ACID [Concomitant]
     Dosage: 500 MG, 2X/DAY
  6. ACTOS [Concomitant]
     Indication: DIABETES MELLITUS
     Dosage: 25 MG, 1X/DAY
     Route: 048
  7. TRICOR [Concomitant]
     Indication: BLOOD CHOLESTEROL
     Dosage: 145 MG, 1X/DAY
  8. PREVACID [Concomitant]
     Indication: DYSPEPSIA
     Dosage: 30 MG, 1X/DAY
     Route: 048
  9. PREVACID [Concomitant]
     Route: 048
  10. MOBIC [Concomitant]
     Dosage: 7.5 MG, 2X/DAY
     Route: 048
  11. ZYRTEC [Concomitant]
     Dosage: UNK
  12. XYZAL [Concomitant]
     Indication: HYPERSENSITIVITY
     Dosage: 5 MG, 1X/DAY
     Route: 048
  13. HYDROCODONE [Concomitant]
     Dosage: 500 MG, 2X/DAY
  14. NASONEX [Concomitant]
     Dosage: UNK
  15. TEGRETOL [Concomitant]
     Indication: CONVULSION
     Dosage: UNK
     Route: 048
  16. ACETYLSALICYLIC ACID [Concomitant]
     Dosage: 325 MG, 2X/DAY
     Route: 048
  17. ZOLOFT [Concomitant]
     Dosage: 25 MG, 1X/DAY
     Route: 048
  18. GLUCOPHAGE [Concomitant]
     Dosage: 1000 MG, 1X/DAY
     Route: 048
  19. CARDIZEM [Concomitant]
     Indication: HYPERTENSION
     Dosage: 360 MG, 1X/DAY
     Route: 048
  20. COREG [Concomitant]
     Dosage: 3.125 MG, 3X/DAY
     Route: 048
  21. XANAX [Concomitant]
     Indication: ANXIETY
     Dosage: 0.5 MG, 3X/DAY
     Route: 048

REACTIONS (8)
  - ADVERSE DRUG REACTION [None]
  - ANTICONVULSANT DRUG LEVEL INCREASED [None]
  - DIABETES MELLITUS [None]
  - MOUTH INJURY [None]
  - MOVEMENT DISORDER [None]
  - MUSCLE TWITCHING [None]
  - MUSCULAR WEAKNESS [None]
  - SWOLLEN TONGUE [None]
